FAERS Safety Report 9514613 (Version 2)
Quarter: 2013Q4

REPORT INFORMATION
  Report Type: Spontaneous
  Country: US (occurrence: US)
  Receive Date: 20130911
  Receipt Date: 20131002
  Transmission Date: 20140711
  Serious: Yes (Hospitalization, Other)
  Sender: FDA-Public Use
  Company Number: US-009507513-1308USA009263

PATIENT
  Age: 68 Year
  Sex: Male
  Weight: 62.13 kg

DRUGS (5)
  1. PEGINTRON [Suspect]
     Indication: HEPATITIS C
     Dosage: REDIPEN, 120MCG/0.5ML
     Route: 058
     Dates: start: 20130806, end: 20130909
  2. REBETOL [Suspect]
     Indication: HEPATITIS C
     Dosage: 1 DF, BID
     Route: 048
     Dates: start: 20130807, end: 201308
  3. REBETOL [Suspect]
     Dosage: 1 DF, QD, 800MG
     Route: 048
     Dates: start: 201308, end: 20130909
  4. REBETOL [Suspect]
     Dosage: UNK
  5. TELAPREVIR [Suspect]
     Indication: HEPATITIS C
     Dosage: UNK
     Route: 048
     Dates: start: 20130807, end: 20130909

REACTIONS (17)
  - Non-cardiac chest pain [Unknown]
  - Cerebrovascular accident [Unknown]
  - Dyspnoea [Unknown]
  - Hypertension [Unknown]
  - Vomiting [Recovered/Resolved]
  - Nausea [Recovered/Resolved]
  - Weight decreased [Unknown]
  - Decreased appetite [Recovered/Resolved]
  - Blood glucose increased [Unknown]
  - Decreased appetite [Unknown]
  - Weight decreased [Unknown]
  - Drug ineffective [Unknown]
  - Drug ineffective [Unknown]
  - Schizoaffective disorder [Unknown]
  - Hyperlipidaemia [Unknown]
  - Dyskinesia [Unknown]
  - Gastrooesophageal reflux disease [Unknown]
